FAERS Safety Report 18445001 (Version 1)
Quarter: 2020Q4

REPORT INFORMATION
  Report Type: Spontaneous
  Country: ES (occurrence: ES)
  Receive Date: 20201030
  Receipt Date: 20201030
  Transmission Date: 20210114
  Serious: Yes (Hospitalization, Other)
  Sender: FDA-Public Use
  Company Number: ES-CADILA HEALTHCARE LIMITED-ES-ZYDUS-028521

PATIENT

DRUGS (24)
  1. ABILIFY [Suspect]
     Active Substance: ARIPIPRAZOLE
     Indication: DEPRESSION
     Dosage: 5 MILLIGRAM,5 MG, QD,(INTERVAL :1 DAYS)
     Route: 065
  2. PALIPERIDONE PALMITATE [Suspect]
     Active Substance: PALIPERIDONE PALMITATE
     Indication: DEPRESSION
     Dosage: 5 MILLIGRAM
     Route: 065
  3. ZARELIS (VENLAFAXINE HYDROCHLORIDE) [Suspect]
     Active Substance: VENLAFAXINE HYDROCHLORIDE
     Dosage: 10 MILLIGRAM,10 MG, UNK
     Route: 065
  4. CYMBALTA [Suspect]
     Active Substance: DULOXETINE HYDROCHLORIDE
     Indication: DEPRESSION
     Dosage: 200 MILLIGRAM,200 MG, QD,(INTERVAL :1 DAYS)
     Route: 065
  5. AMISULPRIDA [Suspect]
     Active Substance: AMISULPRIDE
     Indication: DEPRESSION
     Dosage: 5 MILLIGRAM,5 MG, UNK
     Route: 065
  6. TRYPTIZOL [Suspect]
     Active Substance: AMITRIPTYLINE HYDROCHLORIDE
     Indication: DEPRESSION
     Dosage: 75 MILLIGRAM,75 MG, UNK
     Route: 065
  7. RISPERIDONA [Suspect]
     Active Substance: RISPERIDONE
     Indication: DEPRESSION
     Dosage: 2.5 MILLIGRAM,2.5 MG, QD,(INTERVAL :1 DAYS)
     Route: 065
  8. OXCARBAZEPINA [Suspect]
     Active Substance: OXCARBAZEPINE
     Indication: DEPRESSION
     Dosage: 5 MILLIGRAM,5 MG, UNK
     Route: 065
  9. ZYPREXA [Suspect]
     Active Substance: OLANZAPINE
     Indication: DEPRESSION
     Dosage: 2.5 MILLIGRAM
     Route: 065
  10. ORFIDAL [Suspect]
     Active Substance: LORAZEPAM
     Indication: DEPRESSION
     Dosage: 300 MILLIGRAM,300 MG, QD,(INTERVAL :1 DAYS)
     Route: 065
  11. SINOGAN [LEVOMEPROMAZINE MALEATE] [Suspect]
     Active Substance: LEVOMEPROMAZINE MALEATE
     Indication: DEPRESSION
     Dosage: 50 MILLIGRAM,50 MG, QD,(INTERVAL :1 DAYS)
     Route: 065
  12. ANAFRANIL [Suspect]
     Active Substance: CLOMIPRAMINE HYDROCHLORIDE
     Dosage: 10 MILLIGRAM,10 MG, UNK
     Route: 065
  13. DEPRAX [TRAZODONE HYDROCHLORIDE] [Suspect]
     Active Substance: TRAZODONE HYDROCHLORIDE
     Indication: DEPRESSION
     Dosage: 200 MG, QD ()
     Route: 065
  14. SIMVASTATIN. [Suspect]
     Active Substance: SIMVASTATIN
     Indication: DEPRESSION
     Dosage: 100 MILLIGRAM,100 MG, UNK
     Route: 065
  15. ZARELIS (VENLAFAXINE HYDROCHLORIDE) [Suspect]
     Active Substance: VENLAFAXINE HYDROCHLORIDE
     Indication: DEPRESSION
     Dosage: 75 MILLIGRAM,75 MG, UNK,(INTERVAL :1 DAYS)
     Route: 065
  16. QUETIAPINA FUMARATO [Suspect]
     Active Substance: QUETIAPINE FUMARATE
     Indication: DEPRESSION
     Dosage: 50 MILLIGRAM,50 MG, QD,(INTERVAL :1 DAYS)
     Route: 065
  17. QUETIAPINA FUMARATO [Suspect]
     Active Substance: QUETIAPINE FUMARATE
     Indication: DEPRESSION
     Dosage: 100 MILLIGRAM,100 MG, UNK
     Route: 065
  18. ANAFRANIL [Suspect]
     Active Substance: CLOMIPRAMINE HYDROCHLORIDE
     Indication: DEPRESSION
     Dosage: 75 MILLIGRAM,75 MG, QD,(INTERVAL :1 DAYS)
     Route: 065
  19. LUDIOMIL [Suspect]
     Active Substance: MAPROTILINE HYDROCHLORIDE
     Indication: DEPRESSION
     Dosage: 75 MILLIGRAM,75 MG, QD,(INTERVAL :1 DAYS)
     Route: 065
  20. VALPROATO SODIO [Suspect]
     Active Substance: VALPROATE SODIUM
     Indication: DEPRESSION
     Dosage: 200 MILLIGRAM,200 MG, QD
     Route: 065
  21. GABAPENTINE [Suspect]
     Active Substance: GABAPENTIN
     Indication: DEPRESSION
     Dosage: 300 MILLIGRAM,300 MG, QD
     Route: 065
  22. ZARELIS (VENLAFAXINE HYDROCHLORIDE) [Suspect]
     Active Substance: VENLAFAXINE HYDROCHLORIDE
     Indication: DEPRESSION
     Dosage: 75 MILLIGRAM,75 MG, QD,(INTERVAL :1 DAYS)
     Route: 065
  23. OLANZAPINA [Suspect]
     Active Substance: OLANZAPINE
     Indication: DEPRESSION
     Dosage: 2.5 MILLIGRAM,2.5 MG, UNK
     Route: 065
  24. PALIPERIDONA [Suspect]
     Active Substance: PALIPERIDONE
     Indication: DEPRESSION
     Dosage: 5 MG, UNK ()
     Route: 065

REACTIONS (12)
  - Off label use [Unknown]
  - Mental disorder [Unknown]
  - Constipation [Unknown]
  - Adverse event [Unknown]
  - Eye irritation [Unknown]
  - Psoriasis [Unknown]
  - Dry eye [Unknown]
  - Visual impairment [Unknown]
  - Product use in unapproved indication [Unknown]
  - Vision blurred [Unknown]
  - Intestinal obstruction [Unknown]
  - Conjunctivitis [Unknown]
